FAERS Safety Report 9780965 (Version 3)
Quarter: 2014Q1

REPORT INFORMATION
  Report Type: Not Available
  Country: JP (occurrence: JP)
  Receive Date: 20131224
  Receipt Date: 20140221
  Transmission Date: 20141002
  Serious: Yes (Hospitalization, Other)
  Sender: FDA-Public Use
  Company Number: JP-NAPPMUNDI-GBR-2013-0016307

PATIENT
  Age: 82 Year
  Sex: Male

DRUGS (6)
  1. OXYCODONE HCL PR TABLET [Suspect]
     Indication: CANCER PAIN
     Dosage: 20 MG, DAILY
     Route: 048
     Dates: start: 20131005, end: 20131008
  2. MUCOSTA [Concomitant]
     Dosage: 300 MG, DAILY
     Route: 048
     Dates: start: 20100403
  3. PLATIBIT [Concomitant]
     Dosage: 1.0 MCG, DAILY
     Route: 048
     Dates: start: 20110731
  4. GLAKAY [Concomitant]
     Dosage: 45 MG, DAILY
     Route: 048
     Dates: start: 20100817
  5. ESTRACYT                           /00327002/ [Concomitant]
     Indication: PROSTATE CANCER
     Dosage: 313.4 MG, DAILY
     Route: 048
     Dates: start: 20130223
  6. ESTRACYT                           /00327002/ [Concomitant]
     Indication: METASTASES TO BONE

REACTIONS (9)
  - Body temperature increased [Recovered/Resolved]
  - Cyanosis [Recovered/Resolved]
  - Peripheral coldness [Recovered/Resolved]
  - Blood pressure increased [Recovered/Resolved]
  - Confusional state [Recovered/Resolved]
  - Unresponsive to stimuli [Recovered/Resolved]
  - Respiratory depth decreased [Recovered/Resolved]
  - Depressed level of consciousness [Recovered/Resolved]
  - Restlessness [Recovered/Resolved]
